FAERS Safety Report 22082995 (Version 1)
Quarter: 2023Q1

REPORT INFORMATION
  Report Type: Report from Study
  Country: CA (occurrence: CA)
  Receive Date: 20230310
  Receipt Date: 20230310
  Transmission Date: 20230417
  Serious: Yes (Life-Threatening, Hospitalization)
  Sender: FDA-Public Use
  Company Number: CA-JNJFOC-20230222590

PATIENT
  Age: 31 Year
  Sex: Male

DRUGS (1)
  1. REMICADE [Suspect]
     Active Substance: INFLIXIMAB
     Indication: Colitis ulcerative
     Dosage: THERAPY START DATE WAS ALSO GIVEN AS 26-FEB-2021. THE PATIENT^S LAST REMICADE DOSE WAS AROUND 19-DEC
     Route: 042
     Dates: start: 20150402

REACTIONS (5)
  - Staphylococcal infection [Recovering/Resolving]
  - Weight decreased [Unknown]
  - Asthenia [Unknown]
  - Fatigue [Not Recovered/Not Resolved]
  - Off label use [Unknown]

NARRATIVE: CASE EVENT DATE: 20150402
